FAERS Safety Report 17913147 (Version 2)
Quarter: 2020Q3

REPORT INFORMATION
  Report Type: Spontaneous
  Country: US (occurrence: US)
  Receive Date: 20200618
  Receipt Date: 20200709
  Transmission Date: 20201103
  Serious: No
  Sender: FDA-Public Use
  Company Number: US-TEVA-2020-US-1788409

PATIENT
  Sex: Male

DRUGS (5)
  1. APAP [Suspect]
     Active Substance: ACETAMINOPHEN
     Route: 065
  2. OXYCODONE [Suspect]
     Active Substance: OXYCODONE
     Route: 065
  3. GABAPENTIN. [Suspect]
     Active Substance: GABAPENTIN
     Route: 065
  4. BACLOFEN. [Suspect]
     Active Substance: BACLOFEN
     Route: 065
  5. PERCOCET [Suspect]
     Active Substance: ACETAMINOPHEN\OXYCODONE HYDROCHLORIDE
     Route: 065

REACTIONS (2)
  - Feeling abnormal [Unknown]
  - Euphoric mood [Unknown]
